FAERS Safety Report 8563440-5 (Version None)
Quarter: 2012Q3

REPORT INFORMATION
  Report Type: 
  Country: None (occurrence: None)
  Receive Date: 20120802
  Receipt Date: 20120725
  Transmission Date: 20120928
  Serious: Yes (Hospitalization)
  Sender: FDA-Public Use
  Company Number: CN-ABBOTT-12P-035-0917050-00

PATIENT
  Age: 72 Year
  Sex: Female
  Weight: 55 kg

DRUGS (2)
  1. DEPAKENE [Suspect]
     Indication: POSTOPERATIVE CARE
     Dosage: DAILY DOSE: 1.6 GM
     Route: 042
     Dates: start: 20111218, end: 20111220
  2. CARBAMAZEPINE [Concomitant]
     Indication: PRODUCT USED FOR UNKNOWN INDICATION
     Dates: start: 20111218, end: 20111220

REACTIONS (2)
  - ENCEPHALOPATHY [None]
  - DRUG LEVEL ABOVE THERAPEUTIC [None]
